FAERS Safety Report 5936567-1 (Version None)
Quarter: 2008Q4

REPORT INFORMATION
  Report Type: 
  Country: None (occurrence: None)
  Receive Date: 20081030
  Receipt Date: 20081028
  Transmission Date: 20090506
  Serious: Yes (Other)
  Sender: FDA-Public Use
  Company Number: JP-B.I. PHARMACEUTICALS,INC./RIDGEFIELD-2008-BP-16441NB

PATIENT
  Sex: Male

DRUGS (8)
  1. MICARDIS [Suspect]
     Indication: HYPERTENSION
     Route: 048
  2. PROGRAF [Suspect]
     Indication: LUPUS NEPHRITIS
     Dosage: 2MG
     Route: 048
  3. PREDNISOLONE [Suspect]
     Indication: LUPUS NEPHRITIS
     Dosage: 18MG
     Route: 048
  4. WARFARIN SODIUM [Concomitant]
     Route: 048
  5. ZANTAC [Concomitant]
     Route: 048
  6. ALFAROL [Concomitant]
     Route: 048
  7. MEVALOTIN [Concomitant]
     Indication: HYPERTENSION
     Route: 048
  8. BONALON [Concomitant]
     Route: 048

REACTIONS (4)
  - BLOOD CREATININE INCREASED [None]
  - HERPES ZOSTER [None]
  - RENAL IMPAIRMENT [None]
  - UPPER RESPIRATORY TRACT INFLAMMATION [None]
